FAERS Safety Report 23655392 (Version 1)
Quarter: 2024Q1

REPORT INFORMATION
  Report Type: Spontaneous
  Country: UZ (occurrence: UZ)
  Receive Date: 20240320
  Receipt Date: 20240320
  Transmission Date: 20240410
  Serious: Yes (Death, Hospitalization)
  Sender: FDA-Public Use
  Company Number: UZ-JNJFOC-20240348867

PATIENT
  Age: 65 Year
  Sex: Male
  Weight: 47 kg

DRUGS (8)
  1. SIRTURO [Suspect]
     Active Substance: BEDAQUILINE FUMARATE
     Indication: Pulmonary tuberculosis
     Route: 048
     Dates: start: 20231208, end: 20231224
  2. SIRTURO [Suspect]
     Active Substance: BEDAQUILINE FUMARATE
     Indication: Tuberculosis
     Route: 048
     Dates: start: 20231225
  3. LINEZOLID [Suspect]
     Active Substance: LINEZOLID
     Indication: Pulmonary tuberculosis
     Route: 065
     Dates: start: 20231208
  4. LINEZOLID [Suspect]
     Active Substance: LINEZOLID
     Indication: Tuberculosis
  5. CLOFAZIMINE [Suspect]
     Active Substance: CLOFAZIMINE
     Indication: Pulmonary tuberculosis
     Route: 065
     Dates: start: 20231208
  6. CLOFAZIMINE [Suspect]
     Active Substance: CLOFAZIMINE
     Indication: Tuberculosis
  7. PRETOMANID [Suspect]
     Active Substance: PRETOMANID
     Indication: Pulmonary tuberculosis
     Route: 065
     Dates: start: 20231208
  8. PRETOMANID [Suspect]
     Active Substance: PRETOMANID
     Indication: Tuberculosis

REACTIONS (14)
  - Respiratory depression [Fatal]
  - Loss of consciousness [Fatal]
  - Myocardial ischaemia [Fatal]
  - Angina pectoris [Fatal]
  - Cardiac failure chronic [Fatal]
  - Pulmonary embolism [Fatal]
  - Cardiopulmonary failure [Fatal]
  - Humerus fracture [Unknown]
  - Fall [Unknown]
  - Anaemia [Unknown]
  - Productive cough [Unknown]
  - Dyspnoea exertional [Unknown]
  - Chest pain [Unknown]
  - Peripheral swelling [Unknown]

NARRATIVE: CASE EVENT DATE: 20240127
